FAERS Safety Report 5352473-8 (Version None)
Quarter: 2007Q2

REPORT INFORMATION
  Report Type: 
  Country: None (occurrence: None)
  Receive Date: 20070611
  Receipt Date: 20070531
  Transmission Date: 20071010
  Serious: Yes (Hospitalization)
  Sender: FDA-Public Use
  Company Number: B0469931A

PATIENT
  Age: 64 Year
  Sex: Male
  Weight: 80 kg

DRUGS (8)
  1. ARIXTRA [Suspect]
     Dosage: 2.5MG PER DAY
     Route: 058
     Dates: start: 20070307, end: 20070315
  2. FORLAX [Concomitant]
     Dosage: 2UNIT AS REQUIRED
     Route: 048
     Dates: start: 20070307
  3. TOPALGIC (FRANCE) [Concomitant]
     Dosage: 50MG AS REQUIRED
     Route: 048
     Dates: start: 20070307
  4. TAREG [Concomitant]
     Dosage: 160MG PER DAY
     Route: 048
     Dates: start: 20070307
  5. NEXIUM [Concomitant]
     Dosage: 20MG PER DAY
     Route: 048
     Dates: start: 20070307
  6. DAFALGAN [Concomitant]
     Dosage: 3G PER DAY
     Route: 048
     Dates: start: 20070307
  7. LAROXYL [Concomitant]
     Route: 048
     Dates: start: 20070307
  8. RIVOTRIL [Concomitant]
     Dosage: 5DROP AT NIGHT
     Route: 048
     Dates: start: 20070307

REACTIONS (4)
  - ACTIVATED PARTIAL THROMBOPLASTIN TIME PROLONGED [None]
  - PLEURAL EFFUSION [None]
  - PLEURISY [None]
  - PULMONARY HAEMORRHAGE [None]
